FAERS Safety Report 20502242 (Version 2)
Quarter: 2022Q1

REPORT INFORMATION
  Report Type: Report from Study
  Country: US (occurrence: US)
  Receive Date: 20220222
  Receipt Date: 20220301
  Transmission Date: 20220424
  Serious: Yes (Hospitalization)
  Sender: FDA-Public Use
  Company Number: US-GILEAD-2021-0529077

PATIENT
  Age: 65 Year
  Sex: Female
  Weight: 82.8 kg

DRUGS (12)
  1. SACITUZUMAB GOVITECAN [Suspect]
     Active Substance: SACITUZUMAB GOVITECAN
     Indication: Breast cancer metastatic
     Dosage: 10 MG/KG, DAYS 1 AND 8 OF 21 DAY CYCLE
     Route: 042
     Dates: start: 20190613, end: 20190613
  2. SACITUZUMAB GOVITECAN [Suspect]
     Active Substance: SACITUZUMAB GOVITECAN
     Dosage: 10 MG/KG, DAYS 1 AND 8 OF 21 DAY CYCLE
     Route: 042
     Dates: start: 20190905, end: 20190905
  3. CIPROFLOXACIN LACTATE [Concomitant]
     Active Substance: CIPROFLOXACIN LACTATE
     Indication: Colitis
     Dosage: 500 MG, BID
     Route: 048
     Dates: start: 20190912, end: 20190919
  4. FLAGYL [Concomitant]
     Active Substance: METRONIDAZOLE\METRONIDAZOLE HYDROCHLORIDE
     Indication: Colitis
     Dosage: 500 MG, TID
     Route: 048
     Dates: start: 20190912, end: 20190919
  5. LASIX [Concomitant]
     Active Substance: FUROSEMIDE
     Indication: Oedema peripheral
     Dosage: 40 MG, SINGLE (ONCE)
     Route: 042
     Dates: start: 20190919, end: 20190919
  6. LASIX [Concomitant]
     Active Substance: FUROSEMIDE
     Indication: Oedema
     Dosage: 20 MG, QD
     Route: 048
     Dates: start: 20190925, end: 20190926
  7. LIPITOR [Concomitant]
     Active Substance: ATORVASTATIN CALCIUM
     Indication: Hyperlipidaemia
     Dosage: 10 MG, QD
     Route: 065
     Dates: start: 20190927, end: 20190927
  8. PEPCID [Concomitant]
     Active Substance: FAMOTIDINE
     Indication: Prophylaxis
     Dosage: 20 MG, Q2D (EVERY OTHER DAY)
     Route: 065
     Dates: start: 20190927, end: 20190929
  9. MORPHINE [Concomitant]
     Active Substance: MORPHINE
     Indication: Back pain
     Dosage: 2 MG, PRN
     Route: 065
     Dates: start: 20190927, end: 20190927
  10. HYDROMORPHONE [Concomitant]
     Active Substance: HYDROMORPHONE
     Indication: Back pain
     Dosage: 0.3 MG, PRN
     Route: 065
     Dates: start: 20190927, end: 20190928
  11. SODIUM BICARBONATE [Concomitant]
     Active Substance: SODIUM BICARBONATE
     Indication: Metabolic acidosis
     Dosage: 650 MG, BID
     Route: 065
     Dates: start: 20190927, end: 20190927
  12. HEPARIN [Concomitant]
     Active Substance: HEPARIN SODIUM
     Indication: Prophylaxis
     Dosage: 5000 UNK
     Route: 065
     Dates: start: 20190927, end: 20190930

REACTIONS (1)
  - Acute kidney injury [Not Recovered/Not Resolved]

NARRATIVE: CASE EVENT DATE: 20190920
